FAERS Safety Report 10211224 (Version 1)
Quarter: 2014Q2

REPORT INFORMATION
  Report Type: Spontaneous
  Country: US (occurrence: US)
  Receive Date: 20140602
  Receipt Date: 20140602
  Transmission Date: 20141212
  Serious: Yes (Other)
  Sender: FDA-Public Use
  Company Number: US-ACTAVIS-2014-11722

PATIENT
  Age: 55 Year
  Sex: Male

DRUGS (1)
  1. PREDNISONE (WATSON LABORATORIES) [Suspect]
     Indication: CROHN^S DISEASE
     Dosage: 40 MG, DAILY
     Route: 065

REACTIONS (14)
  - Hallucinations, mixed [Recovered/Resolved]
  - Distractibility [Recovered/Resolved]
  - Energy increased [Recovered/Resolved]
  - Insomnia [Recovered/Resolved]
  - Overconfidence [Recovered/Resolved]
  - Abnormal behaviour [Recovered/Resolved]
  - Psychomotor hyperactivity [Recovered/Resolved]
  - Suspiciousness [Recovered/Resolved]
  - Flight of ideas [Recovered/Resolved]
  - Impaired work ability [Recovered/Resolved]
  - Aggression [Recovered/Resolved]
  - Depressed mood [Recovered/Resolved]
  - Tearfulness [Recovered/Resolved]
  - Psychomotor retardation [Recovered/Resolved]
